FAERS Safety Report 6449243-6 (Version None)
Quarter: 2009Q4

REPORT INFORMATION
  Report Type: 
  Country: None (occurrence: None)
  Receive Date: 20091112
  Receipt Date: 20090213
  Transmission Date: 20100525
  Serious: Yes (Other)
  Sender: FDA-Public Use
  Company Number: 2009US-21269

PATIENT
  Sex: Male

DRUGS (2)
  1. CEPHALEXIN [Suspect]
     Indication: UPPER RESPIRATORY TRACT INFECTION
     Dosage: 500 MG, BID, ORAL
     Route: 048
     Dates: start: 20080401, end: 20080501
  2. DEPO-TESTOSTERONE [Concomitant]

REACTIONS (1)
  - ARTHRALGIA [None]
